FAERS Safety Report 6170366-3 (Version None)
Quarter: 2009Q2

REPORT INFORMATION
  Report Type: 
  Country: None (occurrence: None)
  Receive Date: 20090428
  Receipt Date: 20090417
  Transmission Date: 20091009
  Serious: Yes (Hospitalization)
  Sender: FDA-Public Use
  Company Number: US-MERCK-0605USA04318

PATIENT
  Age: 45 Year
  Sex: Female
  Weight: 61 kg

DRUGS (2)
  1. FOSAMAX [Suspect]
     Indication: OSTEOPOROSIS
     Route: 048
     Dates: start: 20020619
  2. FOSAMAX [Suspect]
     Indication: OSTEOPENIA
     Route: 048
     Dates: start: 20020619

REACTIONS (39)
  - ABDOMINAL PAIN [None]
  - ADVERSE DRUG REACTION [None]
  - AMENORRHOEA [None]
  - ANOREXIA [None]
  - ANXIETY [None]
  - ARTHRITIS [None]
  - BACK PAIN [None]
  - BONE DISORDER [None]
  - CELLULITIS [None]
  - CHILLS [None]
  - CONSTIPATION [None]
  - DEPRESSION [None]
  - DIARRHOEA [None]
  - DYSPHORIA [None]
  - DYSURIA [None]
  - EMPHYSEMA [None]
  - FACIAL PAIN [None]
  - FATIGUE [None]
  - HEADACHE [None]
  - HYPERHIDROSIS [None]
  - INFECTION [None]
  - INSOMNIA [None]
  - JAW FRACTURE [None]
  - LEUKOCYTOSIS [None]
  - MALAISE [None]
  - NAUSEA [None]
  - ODYNOPHAGIA [None]
  - OROPHARYNGEAL PAIN [None]
  - OSTEOMYELITIS [None]
  - OSTEONECROSIS [None]
  - PAIN IN EXTREMITY [None]
  - PAROSMIA [None]
  - PRURITUS [None]
  - PYREXIA [None]
  - RASH [None]
  - RECTOCELE [None]
  - TINNITUS [None]
  - TRIGEMINAL NEURALGIA [None]
  - UTERINE PROLAPSE [None]
